FAERS Safety Report 23672728 (Version 6)
Quarter: 2025Q2

REPORT INFORMATION
  Report Type: Report from Study
  Country: CH (occurrence: CH)
  Receive Date: 20240326
  Receipt Date: 20250512
  Transmission Date: 20250716
  Serious: Yes (Death, Life-Threatening, Hospitalization, Other)
  Sender: NOVARTIS
  Company Number: CH-002147023-NVSC2022CH181481

PATIENT
  Age: 78 Year
  Sex: Female
  Weight: 70.8 kg

DRUGS (7)
  1. KISQALI [Suspect]
     Active Substance: RIBOCICLIB SUCCINATE
     Indication: Hormone receptor positive HER2 negative breast cancer
     Route: 048
     Dates: start: 20220218, end: 20220403
  2. KISQALI [Suspect]
     Active Substance: RIBOCICLIB SUCCINATE
     Route: 048
     Dates: start: 20220511, end: 20220608
  3. KISQALI [Suspect]
     Active Substance: RIBOCICLIB SUCCINATE
     Route: 065
     Dates: start: 20220608, end: 20220705
  4. KISQALI [Suspect]
     Active Substance: RIBOCICLIB SUCCINATE
     Route: 048
     Dates: start: 20220706, end: 20240725
  5. KISQALI [Suspect]
     Active Substance: RIBOCICLIB SUCCINATE
     Route: 048
     Dates: start: 20220218, end: 20240725
  6. FEMARA [Suspect]
     Active Substance: LETROZOLE
     Indication: Hormone receptor positive HER2 negative breast cancer
     Dosage: 2.5 MG, QD
     Route: 048
     Dates: start: 20220218, end: 20240308
  7. FULVESTRANT [Suspect]
     Active Substance: FULVESTRANT
     Indication: Hormone receptor positive HER2 negative breast cancer
     Route: 030
     Dates: start: 20240308, end: 20240725

REACTIONS (12)
  - Syncope [Recovered/Resolved]
  - Neutrophil count decreased [Recovered/Resolved]
  - Neutrophil count decreased [Recovered/Resolved]
  - Neutrophil count decreased [Recovered/Resolved]
  - Pneumonitis [Recovered/Resolved]
  - Asthenia [Recovered/Resolved]
  - Cough [Recovered/Resolved]
  - Pyrexia [Recovered/Resolved]
  - Fatigue [Unknown]
  - Dyspnoea [Unknown]
  - Malaise [Unknown]
  - Pneumonitis [Unknown]

NARRATIVE: CASE EVENT DATE: 20220406
